FAERS Safety Report 15150978 (Version 6)
Quarter: 2019Q3

REPORT INFORMATION
  Report Type: Spontaneous
  Country: US (occurrence: US)
  Receive Date: 20180716
  Receipt Date: 20190816
  Transmission Date: 20191004
  Serious: No
  Sender: FDA-Public Use
  Company Number: US-SA-2018SA188303

PATIENT
  Age: 78 Year
  Sex: Male

DRUGS (2)
  1. PRALUENT [Suspect]
     Active Substance: ALIROCUMAB
     Indication: HYPERLIPIDAEMIA
     Dosage: 75 MG, QOW
     Route: 058
     Dates: start: 20180423
  2. PRALUENT [Suspect]
     Active Substance: ALIROCUMAB
     Indication: BLOOD CHOLESTEROL
     Dosage: 75 MG,QOW
     Route: 058
     Dates: start: 20190423

REACTIONS (5)
  - Endodontic procedure [Unknown]
  - Abdominal distension [Unknown]
  - Myalgia [Recovered/Resolved]
  - Feeling cold [Unknown]
  - Pain [Unknown]

NARRATIVE: CASE EVENT DATE: 201804
